FAERS Safety Report 9952786 (Version 1)
Quarter: 2014Q1

REPORT INFORMATION
  Report Type: Report from Study
  Country: US (occurrence: US)
  Receive Date: 20140304
  Receipt Date: 20140304
  Transmission Date: 20141002
  Serious: No
  Sender: FDA-Public Use
  Company Number: US-ABBVIE-13P-163-1072583-00

PATIENT
  Age: 41 Year
  Sex: Female

DRUGS (2)
  1. HUMIRA [Suspect]
     Indication: CROHN^S DISEASE
     Dates: start: 2006, end: 20130314
  2. HUMIRA [Suspect]
     Dates: start: 20130404

REACTIONS (6)
  - Pyrexia [Recovered/Resolved]
  - Anaemia [Recovered/Resolved]
  - Herpes zoster [Recovered/Resolved]
  - Laryngitis [Recovered/Resolved]
  - Nasal mucosal discolouration [Recovered/Resolved]
  - Fungal infection [Recovered/Resolved]
